FAERS Safety Report 6440901-6 (Version None)
Quarter: 2009Q4

REPORT INFORMATION
  Report Type: 
  Country: None (occurrence: None)
  Receive Date: 20091116
  Receipt Date: 20091105
  Transmission Date: 20100525
  Serious: Yes (Hospitalization)
  Sender: FDA-Public Use
  Company Number: PHHO2009ID13683

PATIENT
  Age: 8 Year
  Sex: Male
  Weight: 25 kg

DRUGS (2)
  1. ICL670A ICL+ [Suspect]
     Indication: IRON OVERLOAD
     Dosage: 20 MG/KG, QD
     Route: 048
     Dates: start: 20090912
  2. ICL670A ICL+ [Suspect]
     Dosage: 10 MG/KG, QD
     Route: 048

REACTIONS (3)
  - FATIGUE [None]
  - FEBRILE NEUTROPENIA [None]
  - PALLOR [None]
